FAERS Safety Report 16760190 (Version 10)
Quarter: 2020Q2

REPORT INFORMATION
  Report Type: Spontaneous
  Country: US (occurrence: US)
  Receive Date: 20190830
  Receipt Date: 20200625
  Transmission Date: 20200713
  Serious: Yes (Hospitalization)
  Sender: FDA-Public Use
  Company Number: US-PFIZER INC-2019369914

PATIENT
  Age: 76 Year
  Sex: Female
  Weight: 53.29 kg

DRUGS (10)
  1. FULVESTRANT. [Suspect]
     Active Substance: FULVESTRANT
     Indication: BREAST CANCER METASTATIC
     Dosage: 2 DF EVERY 2 WEEKS
     Route: 030
     Dates: start: 20190819
  2. FULVESTRANT. [Suspect]
     Active Substance: FULVESTRANT
     Dosage: 2 DF, MONTHLY
     Route: 030
  3. IBRANCE [Suspect]
     Active Substance: PALBOCICLIB
     Dosage: UNK
     Dates: start: 202001
  4. IBRANCE [Suspect]
     Active Substance: PALBOCICLIB
     Dosage: UNK
     Dates: start: 20191210
  5. SENNA [SENNOSIDE A+B] [Concomitant]
     Active Substance: SENNOSIDES A AND B
     Indication: CONSTIPATION
     Dosage: 8.6 MG, 2X/DAY
     Dates: start: 20190821
  6. IBRANCE [Suspect]
     Active Substance: PALBOCICLIB
     Indication: BREAST CANCER METASTATIC
     Dosage: 125 MG, ONCE A DAY
     Dates: start: 20190906, end: 20191003
  7. IBRANCE [Suspect]
     Active Substance: PALBOCICLIB
     Dosage: 125 MG, CYCLIC (ONCE A DAY, ON FOR 21 DAYS, OFF FOR 7 DAYS)
     Dates: start: 20191113, end: 20191202
  8. IBRANCE [Suspect]
     Active Substance: PALBOCICLIB
     Dosage: 125 MG
  9. METHADONE [Concomitant]
     Active Substance: METHADONE HYDROCHLORIDE
     Indication: PAIN
     Dosage: 5 MG, 2X/DAY
     Dates: start: 20190819
  10. IBRANCE [Suspect]
     Active Substance: PALBOCICLIB
     Dosage: UNK
     Dates: start: 202002

REACTIONS (6)
  - White blood cell count decreased [Unknown]
  - Tenosynovitis [Unknown]
  - Body height decreased [Unknown]
  - Platelet count decreased [Unknown]
  - Blood count abnormal [Unknown]
  - Alopecia [Unknown]

NARRATIVE: CASE EVENT DATE: 20191007
